FAERS Safety Report 25713604 (Version 1)
Quarter: 2025Q3

REPORT INFORMATION
  Report Type: Spontaneous
  Country: US (occurrence: US)
  Receive Date: 20250822
  Receipt Date: 20250822
  Transmission Date: 20251021
  Serious: No
  Sender: RISING PHARMACEUTICALS
  Company Number: US-RISINGPHARMA-US-2025RISSPO00399

PATIENT
  Sex: Male
  Weight: 157 kg

DRUGS (5)
  1. LEVETIRACETAM [Suspect]
     Active Substance: LEVETIRACETAM
     Indication: Partial seizures
     Route: 048
     Dates: start: 20250529, end: 2025
  2. LEVETIRACETAM [Suspect]
     Active Substance: LEVETIRACETAM
     Route: 048
     Dates: start: 2025
  3. LEVETIRACETAM [Suspect]
     Active Substance: LEVETIRACETAM
     Route: 048
     Dates: start: 20250806
  4. NORVASC [Concomitant]
     Active Substance: AMLODIPINE BESYLATE
     Indication: Product used for unknown indication
     Route: 065
  5. SYNTHROID [Concomitant]
     Active Substance: LEVOTHYROXINE SODIUM
     Indication: Product used for unknown indication
     Route: 065

REACTIONS (6)
  - Lacrimation increased [Not Recovered/Not Resolved]
  - Rhinorrhoea [Not Recovered/Not Resolved]
  - Sneezing [Not Recovered/Not Resolved]
  - Throat tightness [Not Recovered/Not Resolved]
  - Gastrointestinal disorder [Unknown]
  - Frequent bowel movements [Unknown]

NARRATIVE: CASE EVENT DATE: 20250529
